FAERS Safety Report 6397420-5 (Version None)
Quarter: 2009Q4

REPORT INFORMATION
  Report Type: 
  Country: None (occurrence: None)
  Receive Date: 20091012
  Receipt Date: 20091006
  Transmission Date: 20100525
  Serious: Yes (Disabling)
  Sender: FDA-Public Use
  Company Number: PHHO2009GB12300

PATIENT
  Sex: Male
  Weight: 111 kg

DRUGS (4)
  1. ZOLEDRONIC ACID [Suspect]
     Dosage: 4 MG
     Route: 042
     Dates: start: 20091001, end: 20091001
  2. HORMONES AND RELATED AGENTS [Concomitant]
     Indication: METASTASES TO BONE
     Dosage: 3.6 MG
     Route: 058
     Dates: start: 20090918
  3. CALCIUM [Concomitant]
     Dosage: UNK
     Route: 048
     Dates: start: 20091001
  4. VITAMIN D [Concomitant]
     Dosage: UNK
     Route: 048
     Dates: start: 20091001

REACTIONS (2)
  - ARTHRALGIA [None]
  - JOINT STIFFNESS [None]
